FAERS Safety Report 25038099 (Version 4)
Quarter: 2025Q2

REPORT INFORMATION
  Report Type: Spontaneous
  Country: JP (occurrence: JP)
  Receive Date: 20250304
  Receipt Date: 20250616
  Transmission Date: 20250716
  Serious: Yes (Hospitalization)
  Sender: DAIICHI
  Company Number: JP-DSJP-DS-2025-125919-JP

PATIENT
  Age: 75 Year
  Sex: Male
  Weight: 69 kg

DRUGS (12)
  1. EDOXABAN TOSYLATE [Suspect]
     Active Substance: EDOXABAN TOSYLATE
     Indication: Arrhythmia
     Dosage: 60 MG, QD
     Route: 048
     Dates: start: 20220709, end: 20230111
  2. EDOXABAN TOSYLATE [Suspect]
     Active Substance: EDOXABAN TOSYLATE
     Indication: Atrial fibrillation
     Route: 048
     Dates: start: 20230204, end: 20231124
  3. EDOXABAN TOSYLATE [Suspect]
     Active Substance: EDOXABAN TOSYLATE
     Indication: Tachycardia
     Route: 048
     Dates: end: 202504
  4. EDOXABAN TOSYLATE [Suspect]
     Active Substance: EDOXABAN TOSYLATE
     Route: 048
     Dates: start: 20250521, end: 20250606
  5. EDOXABAN TOSYLATE [Suspect]
     Active Substance: EDOXABAN TOSYLATE
     Route: 048
     Dates: start: 2025
  6. PILSICAINIDE HYDROCHLORIDE [Suspect]
     Active Substance: PILSICAINIDE HYDROCHLORIDE
     Indication: Arrhythmia
     Route: 048
     Dates: start: 20220709
  7. CELIPROLOL [Concomitant]
     Active Substance: CELIPROLOL
     Indication: Product used for unknown indication
     Route: 048
  8. BIOFERMIN [BIFIDOBACTERIUM BIFIDUM] [Concomitant]
     Indication: Product used for unknown indication
     Route: 048
  9. TEPRENONE [Concomitant]
     Active Substance: TEPRENONE
     Indication: Product used for unknown indication
     Route: 048
  10. CLOTIAZEPAM [Concomitant]
     Active Substance: CLOTIAZEPAM
     Indication: Product used for unknown indication
     Route: 048
  11. SENNOSIDES A AND B [Concomitant]
     Active Substance: SENNOSIDES A AND B
     Indication: Product used for unknown indication
     Route: 048
  12. UNSPECIFIED INGREDIENT [Concomitant]
     Active Substance: UNSPECIFIED INGREDIENT
     Indication: Hypertension
     Route: 048

REACTIONS (15)
  - Appendicitis [Recovered/Resolved]
  - Gingival bleeding [Recovering/Resolving]
  - Bleeding time prolonged [Recovering/Resolving]
  - Weight decreased [Not Recovered/Not Resolved]
  - Coagulation test abnormal [Unknown]
  - Gingival bleeding [Not Recovered/Not Resolved]
  - Decreased appetite [Unknown]
  - Gingival bleeding [Unknown]
  - Nasopharyngitis [Recovering/Resolving]
  - Epistaxis [Unknown]
  - Epistaxis [Recovering/Resolving]
  - Gingival bleeding [Unknown]
  - Renal atrophy [Unknown]
  - Product dose omission issue [Unknown]
  - Prescribed underdose [Unknown]

NARRATIVE: CASE EVENT DATE: 20230101
